FAERS Safety Report 22386754 (Version 5)
Quarter: 2024Q2

REPORT INFORMATION
  Report Type: Spontaneous
  Country: US (occurrence: US)
  Receive Date: 20230531
  Receipt Date: 20240422
  Transmission Date: 20240715
  Serious: Yes (Other)
  Sender: FDA-Public Use
  Company Number: US-BRISTOL-MYERS SQUIBB COMPANY-2023-076367

PATIENT
  Age: 64 Year
  Sex: Male

DRUGS (1)
  1. POMALYST [Suspect]
     Active Substance: POMALIDOMIDE
     Indication: Plasma cell myeloma
     Dosage: QD 21 DAYS ON THEN 7 DAYS OFF
     Route: 048

REACTIONS (6)
  - Diarrhoea [Unknown]
  - Product dose omission issue [Unknown]
  - Neuropathy peripheral [Unknown]
  - Rhinorrhoea [Unknown]
  - Laboratory test abnormal [Unknown]
  - Sensitive skin [Recovered/Resolved]

NARRATIVE: CASE EVENT DATE: 20231201
